FAERS Safety Report 9043190 (Version 1)
Quarter: 2013Q1

REPORT INFORMATION
  Report Type: Report from Study
  Country: US (occurrence: US)
  Receive Date: 20130129
  Receipt Date: 20130129
  Transmission Date: 20140127
  Serious: No
  Sender: FDA-Public Use
  Company Number: US-ABBOTT-12P-163-0912600-00

PATIENT
  Sex: Female
  Weight: 81.72 kg

DRUGS (5)
  1. HUMIRA 40 MG/ 0.8 ML PRE-FILLED SYRINGE [Suspect]
     Indication: RHEUMATOID ARTHRITIS
     Dates: start: 2004
  2. SYNTHROID [Concomitant]
     Indication: HYPOTHYROIDISM
  3. CARDURA [Concomitant]
     Indication: HYPERTENSION
  4. LOPRESSOR [Concomitant]
     Indication: HEART RATE INCREASED
  5. SAVELLA [Concomitant]
     Indication: FIBROMYALGIA

REACTIONS (3)
  - Sinus headache [Recovered/Resolved]
  - Productive cough [Recovered/Resolved]
  - Pharyngitis streptococcal [Recovered/Resolved]
